FAERS Safety Report 18480333 (Version 1)
Quarter: 2020Q4

REPORT INFORMATION
  Report Type: Spontaneous
  Country: US (occurrence: US)
  Receive Date: 20201109
  Receipt Date: 20201109
  Transmission Date: 20210114
  Serious: Yes (Hospitalization)
  Sender: FDA-Public Use
  Company Number: None

PATIENT
  Age: 87 Year
  Sex: Male
  Weight: 71.6 kg

DRUGS (12)
  1. BISOPROLOL [Concomitant]
     Active Substance: BISOPROLOL
     Dates: start: 20200902
  2. POTASSIUM CHLORIDE ER [Concomitant]
     Active Substance: POTASSIUM CHLORIDE
     Dates: start: 20201101
  3. FUROSEMIDE. [Concomitant]
     Active Substance: FUROSEMIDE
     Dates: start: 20200826
  4. STELARA [Concomitant]
     Active Substance: USTEKINUMAB
     Dates: start: 20200205
  5. CLOPIDOGREL [Suspect]
     Active Substance: CLOPIDOGREL BISULFATE
     Indication: CORONARY ARTERIAL STENT INSERTION
     Route: 048
     Dates: start: 20201001, end: 20201028
  6. TORSEMIDE. [Concomitant]
     Active Substance: TORSEMIDE
     Dates: start: 20200813
  7. PREGABALIN. [Concomitant]
     Active Substance: PREGABALIN
     Dates: start: 20200903
  8. FINASTERIDE. [Concomitant]
     Active Substance: FINASTERIDE
     Dates: start: 20191015
  9. ATORVASTATIN [Concomitant]
     Active Substance: ATORVASTATIN
     Dates: start: 20201001
  10. IPRATROPIUM BROMIDE. [Concomitant]
     Active Substance: IPRATROPIUM BROMIDE
     Dates: start: 20200810
  11. LOSARTAN. [Concomitant]
     Active Substance: LOSARTAN
     Dates: start: 20200312
  12. ELIQUIS [Suspect]
     Active Substance: APIXABAN
     Indication: ATRIAL FIBRILLATION
     Route: 048
     Dates: start: 20200406, end: 20201028

REACTIONS (1)
  - Traumatic intracranial haemorrhage [None]

NARRATIVE: CASE EVENT DATE: 20201028
